FAERS Safety Report 7948487-1 (Version None)
Quarter: 2011Q4

REPORT INFORMATION
  Report Type: 
  Country: None (occurrence: None)
  Receive Date: 20111130
  Receipt Date: 20111128
  Transmission Date: 20120403
  Serious: Yes (Death)
  Sender: FDA-Public Use
  Company Number: FR-B.I. PHARMACEUTICALS,INC./RIDGEFIELD-2011-FF-01109FF

PATIENT
  Sex: Female

DRUGS (10)
  1. TIENAM [Suspect]
     Dates: start: 20110927, end: 20111008
  2. FRESUBIN [Suspect]
     Dates: start: 20110917, end: 20111008
  3. LASIX [Suspect]
     Dates: start: 20111004, end: 20111007
  4. ACETAMINOPHEN [Suspect]
     Dates: start: 20111003, end: 20111007
  5. CALCIPARINE [Suspect]
     Dosage: 0.4 ML
     Route: 058
     Dates: start: 20110922, end: 20111006
  6. CATAPRES [Suspect]
     Dates: start: 20110927, end: 20111007
  7. CIPROFLOXACIN [Suspect]
     Dates: start: 20110927, end: 20111007
  8. VANCOMYCIN [Suspect]
     Dates: start: 20110930, end: 20111007
  9. NOZINAN [Suspect]
     Dates: start: 20110927, end: 20111007
  10. ULTIVA [Suspect]
     Dates: start: 20110929, end: 20111008

REACTIONS (3)
  - CEREBRAL HAEMATOMA [None]
  - THROMBOCYTOPENIA [None]
  - COMA [None]
